FAERS Safety Report 5460461-6 (Version None)
Quarter: 2007Q3

REPORT INFORMATION
  Report Type: 
  Country: None (occurrence: None)
  Receive Date: 20070919
  Receipt Date: 20070913
  Transmission Date: 20080115
  Serious: Yes (Other)
  Sender: FDA-Public Use
  Company Number: CN-PFIZER INC-2007076496

PATIENT

DRUGS (1)
  1. SOLU-MEDROL [Suspect]
     Indication: SPINAL CORD INJURY

REACTIONS (1)
  - EMBOLISM [None]
